FAERS Safety Report 18593952 (Version 3)
Quarter: 2022Q2

REPORT INFORMATION
  Report Type: Spontaneous
  Country: BE (occurrence: BE)
  Receive Date: 20201209
  Receipt Date: 20220513
  Transmission Date: 20220721
  Serious: Yes (Other)
  Sender: FDA-Public Use
  Company Number: BE-AMGEN-BELSP2020191999

PATIENT
  Age: 62 Year
  Sex: Male

DRUGS (12)
  1. ETELCALCETIDE [Suspect]
     Active Substance: ETELCALCETIDE
     Indication: Hyperparathyroidism secondary
     Dosage: 15 MILLIGRAM
     Route: 065
  2. CHOLECALCIFEROL [Concomitant]
     Active Substance: CHOLECALCIFEROL
     Dosage: 25000 INTERNATIONAL UNIT, Q2WK
  3. MYCOPHENOLATE MOFETIL [Concomitant]
     Active Substance: MYCOPHENOLATE MOFETIL
  4. TACROLIMUS [Concomitant]
     Active Substance: TACROLIMUS
  5. METHYLPREDNISOLONE [Concomitant]
     Active Substance: METHYLPREDNISOLONE
  6. VALGANCICLOVIR [Concomitant]
     Active Substance: VALGANCICLOVIR
  7. COTRIMOXAZOLE [Concomitant]
     Active Substance: SULFAMETHOXAZOLE\TRIMETHOPRIM
  8. SIMVASTATIN [Concomitant]
     Active Substance: SIMVASTATIN
  9. SODIUM BICARBONATE [Concomitant]
     Active Substance: SODIUM BICARBONATE
  10. ALLOPURINOL [Concomitant]
     Active Substance: ALLOPURINOL
  11. PANTOPRAZOLE [Concomitant]
     Active Substance: PANTOPRAZOLE
  12. ASPIRIN [Concomitant]
     Active Substance: ASPIRIN

REACTIONS (7)
  - Renal transplant [Unknown]
  - Hypercalcaemia [Recovering/Resolving]
  - Hyperparathyroidism [Recovering/Resolving]
  - Crystal urine [Unknown]
  - Adenoma benign [Recovering/Resolving]
  - Parathyroid hyperplasia [Recovering/Resolving]
  - Blood alkaline phosphatase increased [Unknown]
